FAERS Safety Report 8589765-5 (Version None)
Quarter: 2012Q3

REPORT INFORMATION
  Report Type: 
  Country: None (occurrence: None)
  Receive Date: 20120813
  Receipt Date: 20120803
  Transmission Date: 20120928
  Serious: Yes (Other)
  Sender: FDA-Public Use
  Company Number: GB-ROCHE-1097045

PATIENT
  Age: 44 Year
  Sex: Female
  Weight: 66.6 kg

DRUGS (2)
  1. IBUPROFEN [Concomitant]
     Indication: ANALGESIC INTERVENTION SUPPORTIVE THERAPY
     Route: 048
  2. ACTEMRA [Suspect]
     Indication: RHEUMATOID ARTHRITIS
     Route: 041
     Dates: start: 20111020

REACTIONS (2)
  - VENOUS OCCLUSION [None]
  - DEEP VEIN THROMBOSIS [None]
